FAERS Safety Report 5081164-6 (Version None)
Quarter: 2006Q3

REPORT INFORMATION
  Report Type: 
  Country: None (occurrence: None)
  Receive Date: 20060816
  Receipt Date: 20060620
  Transmission Date: 20061208
  Serious: Yes (Hospitalization, Other)
  Sender: FDA-Public Use
  Company Number: US-AMGEN-STX183815

PATIENT
  Sex: Female

DRUGS (5)
  1. ENBREL [Suspect]
     Indication: RHEUMATOID ARTHRITIS
     Route: 058
     Dates: start: 20021231, end: 20051024
  2. CELEBREX [Concomitant]
     Dates: start: 20040507, end: 20050119
  3. METHOTREXATE [Concomitant]
     Dates: start: 20001002, end: 20051024
  4. ARAVA [Concomitant]
     Dates: start: 20000417
  5. ATENOLOL [Concomitant]

REACTIONS (32)
  - ALANINE AMINOTRANSFERASE INCREASED [None]
  - ALCOHOL USE [None]
  - ARTHRALGIA [None]
  - ASPARTATE AMINOTRANSFERASE INCREASED [None]
  - ATRIAL FIBRILLATION [None]
  - CARDIAC FAILURE CONGESTIVE [None]
  - CHRONIC OBSTRUCTIVE PULMONARY DISEASE [None]
  - CONDITION AGGRAVATED [None]
  - DYSLIPIDAEMIA [None]
  - DYSPNOEA EXERTIONAL [None]
  - IRRITABLE BOWEL SYNDROME [None]
  - LUNG DISORDER [None]
  - MITRAL VALVE INCOMPETENCE [None]
  - MITRAL VALVE REPAIR [None]
  - MYOCARDIAL ISCHAEMIA [None]
  - NODULE [None]
  - PNEUMONIA [None]
  - POSTOPERATIVE WOUND COMPLICATION [None]
  - POSTOPERATIVE WOUND INFECTION [None]
  - PULMONARY HYPERTENSION [None]
  - RASH PUSTULAR [None]
  - RHEUMATOID ARTHRITIS [None]
  - SKIN NODULE [None]
  - SKIN ULCER [None]
  - SLEEP APNOEA SYNDROME [None]
  - STRESS [None]
  - TINEA INFECTION [None]
  - TRANSAMINASES INCREASED [None]
  - ULCER [None]
  - WOUND DECOMPOSITION [None]
  - WOUND DEHISCENCE [None]
  - WOUND INFECTION [None]
